FAERS Safety Report 19869635 (Version 3)
Quarter: 2022Q1

REPORT INFORMATION
  Report Type: Spontaneous
  Country: JP (occurrence: JP)
  Receive Date: 20210923
  Receipt Date: 20220131
  Transmission Date: 20220423
  Serious: Yes (Other)
  Sender: FDA-Public Use
  Company Number: JP-ASTELLAS-2021JP018371

PATIENT
  Age: 78 Year
  Sex: Male

DRUGS (7)
  1. XOSPATA [Suspect]
     Active Substance: GILTERITINIB
     Indication: Acute myeloid leukaemia
     Route: 048
     Dates: start: 20210820, end: 20210914
  2. XOSPATA [Suspect]
     Active Substance: GILTERITINIB
     Route: 048
     Dates: start: 20210915
  3. VENCLEXTA [Concomitant]
     Active Substance: VENETOCLAX
     Indication: Product used for unknown indication
     Dosage: UNK UNK, UNKNOWN FREQ.
     Route: 065
  4. AZACITIDINE [Concomitant]
     Active Substance: AZACITIDINE
     Indication: Product used for unknown indication
     Dosage: UNK UNK, UNKNOWN FREQ.
     Route: 065
  5. VORICONAZOLE [Concomitant]
     Active Substance: VORICONAZOLE
     Indication: Bronchopulmonary aspergillosis
     Dosage: 400 MG/DAY, UNKNOWN FREQ.
     Route: 048
  6. VORICONAZOLE [Concomitant]
     Active Substance: VORICONAZOLE
     Dosage: 100 MG/DAY, UNKNOWN FREQ.
     Route: 048
     Dates: start: 202112
  7. FEXOFENADINE HYDROCHLORIDE [Concomitant]
     Active Substance: FEXOFENADINE HYDROCHLORIDE
     Indication: Rash
     Dosage: UNK UNK, UNKNOWN FREQ.
     Route: 065
     Dates: start: 202109

REACTIONS (4)
  - Bronchopulmonary aspergillosis [Recovered/Resolved]
  - Dizziness [Unknown]
  - Rash [Recovered/Resolved]
  - Vomiting [Unknown]

NARRATIVE: CASE EVENT DATE: 20210901
